FAERS Safety Report 14035095 (Version 8)
Quarter: 2022Q2

REPORT INFORMATION
  Report Type: Spontaneous
  Country: US (occurrence: US)
  Receive Date: 20171003
  Receipt Date: 20220607
  Transmission Date: 20220720
  Serious: Yes (Hospitalization, Other)
  Sender: FDA-Public Use
  Company Number: US-PFIZER INC-2016009780

PATIENT
  Age: 65 Year
  Sex: Female
  Weight: 77 kg

DRUGS (48)
  1. LYRICA [Suspect]
     Active Substance: PREGABALIN
     Indication: Fibromyalgia
     Dosage: 50 MG, 4X/DAY
     Route: 048
     Dates: start: 2010
  2. LYRICA [Suspect]
     Active Substance: PREGABALIN
     Indication: Pain
     Dosage: 50 MG, FOUR TIMES A DAY
     Route: 048
     Dates: start: 20140122
  3. LYRICA [Suspect]
     Active Substance: PREGABALIN
     Indication: Atrial fibrillation
     Dosage: 50 MG, THREE OR FOUR TIMES DAILY
     Route: 048
     Dates: start: 2014
  4. LYRICA [Suspect]
     Active Substance: PREGABALIN
     Indication: Coronary artery disease
     Dosage: 50 MG, 3X/DAY
     Route: 048
  5. LYRICA [Suspect]
     Active Substance: PREGABALIN
     Indication: Gastrooesophageal reflux disease
     Dosage: 50 MG, UNK
     Route: 048
  6. LYRICA [Suspect]
     Active Substance: PREGABALIN
     Dosage: 50 MG, 4X/DAY
     Route: 048
     Dates: start: 20190207
  7. LYRICA [Suspect]
     Active Substance: PREGABALIN
     Dosage: 50 MG
     Route: 048
     Dates: start: 20190723
  8. NORTRIPTYLINE [Concomitant]
     Active Substance: NORTRIPTYLINE
     Dosage: 25 MG, 1X/DAY, (AT BEDTIME )
     Route: 048
     Dates: start: 20151102
  9. NYSTATIN [Concomitant]
     Active Substance: NYSTATIN
     Dosage: 5 ML, 4X/DAY, FOR 10 DAYS
     Route: 048
     Dates: start: 20150812
  10. NYSTATIN [Concomitant]
     Active Substance: NYSTATIN
     Dosage: 5 ML, 3X/DAY, FOR 10 DAYS
     Route: 048
     Dates: start: 20150715
  11. FISH OIL [Concomitant]
     Active Substance: FISH OIL
     Dosage: 2000 MG, DAILY
     Route: 048
     Dates: start: 20130717
  12. ATORVASTATIN [Concomitant]
     Active Substance: ATORVASTATIN
     Dosage: 20 MG, 1X/DAY, (AT BEDTIME)
     Route: 048
     Dates: start: 20150615
  13. LISINOPRIL [Concomitant]
     Active Substance: LISINOPRIL
     Dosage: 2.5 MG, DAILY
     Route: 048
     Dates: start: 20150615
  14. METOPROLOL TARTRATE [Concomitant]
     Active Substance: METOPROLOL TARTRATE
     Dosage: 12.5 MG, 2X/DAY
     Route: 048
     Dates: start: 20150615
  15. PROVENTIL HFA [Concomitant]
     Active Substance: ALBUTEROL SULFATE
     Dosage: 90 UG/ACTUATION, TWO PUFFS DAILY
     Dates: start: 20150615
  16. VITAMIN D3 [Concomitant]
     Active Substance: CHOLECALCIFEROL
     Dosage: 1000 IU, 1X/DAY
     Route: 048
     Dates: start: 20150504, end: 20150603
  17. K-DUR [Concomitant]
     Active Substance: POTASSIUM CHLORIDE
     Dosage: 1.5 (ONE AND 1/2) TABLET, DAILY
     Route: 048
     Dates: start: 20130131
  18. ALBUTEROL [Concomitant]
     Active Substance: ALBUTEROL
     Dosage: 180 UG, DAILY, (EVERY 24 HOURS)
  19. MEDROL [Concomitant]
     Active Substance: METHYLPREDNISOLONE
     Dosage: TAKE AS DIRECTED ON PACKAGE
  20. ASFLOX [Concomitant]
     Dosage: 2 DF, AS NEEDED
  21. PROTONIX [Concomitant]
     Active Substance: PANTOPRAZOLE SODIUM
     Indication: Gastrooesophageal reflux disease
     Dosage: 40 MG, DAILY
     Route: 048
     Dates: start: 20151014
  22. ASPIRIN [Concomitant]
     Active Substance: ASPIRIN
     Indication: Atrial fibrillation
     Dosage: 81 MG, DAILY
     Dates: start: 20130617
  23. LORATADINE [Concomitant]
     Active Substance: LORATADINE
     Indication: Hypersensitivity
     Dosage: 10 MG, DAILY
     Route: 048
     Dates: start: 20150615
  24. SINGULAIR [Concomitant]
     Active Substance: MONTELUKAST SODIUM
     Indication: Asthma
     Dosage: 10 MG, 1X/DAY, (AT BEDTIME)
     Route: 048
     Dates: start: 20150601
  25. SINGULAIR [Concomitant]
     Active Substance: MONTELUKAST SODIUM
     Dosage: 10 MG, DAILY
  26. LASIX [Concomitant]
     Active Substance: FUROSEMIDE
     Indication: Oedema
     Dosage: 40 MG, DAILY
     Route: 048
     Dates: start: 20130524
  27. LASIX [Concomitant]
     Active Substance: FUROSEMIDE
     Dosage: 40 MG, THREE TIMES A WEEK
  28. LASIX [Concomitant]
     Active Substance: FUROSEMIDE
     Dosage: 40 MG, UNK [3 WEEKLY]
  29. NITROGLYCERIN [Concomitant]
     Active Substance: NITROGLYCERIN
     Indication: Chest pain
     Dosage: 0.4 MG, DAILY AS NEEDED, EVERY 5 MINUTES
     Route: 060
     Dates: start: 20150504
  30. NITROGLYCERIN [Concomitant]
     Active Substance: NITROGLYCERIN
     Indication: Cardiac disorder
  31. TRAMADOL [Concomitant]
     Active Substance: TRAMADOL
     Indication: Pain
     Dosage: 400 MG, AS NEEDED, TWO TABLET FOUR TIMES PER DAY FOR 30 DAYS AS NEEDED
     Route: 048
     Dates: start: 20130322
  32. TRAMADOL [Concomitant]
     Active Substance: TRAMADOL
     Dosage: 50 MG, FOUR TIMES A DAY AS NEEDED
  33. TRAMADOL [Concomitant]
     Active Substance: TRAMADOL
     Dosage: 50 MG, 4X/DAY
  34. OMEPRAZOLE [Concomitant]
     Active Substance: OMEPRAZOLE
     Indication: Gastrooesophageal reflux disease
     Dosage: 20 MG, DAILY [ONCE A DAY]
     Route: 048
     Dates: start: 20130131
  35. CRESTOR [Concomitant]
     Active Substance: ROSUVASTATIN CALCIUM
     Indication: Blood cholesterol abnormal
     Dosage: 5 MG, 1X/DAY, (AT BEDTIME)
     Route: 048
  36. WARFARIN [Concomitant]
     Active Substance: WARFARIN
     Indication: Anticoagulant therapy
     Dosage: 5 MG, EVERY MONDAY, WEDNESDAY AND FRIDAY
     Route: 048
     Dates: start: 20130128
  37. WARFARIN [Concomitant]
     Active Substance: WARFARIN
     Dosage: 4 MG, UNK [FIVE TIMES A WEEK, (5X WEEKLY)]
     Route: 048
  38. WARFARIN [Concomitant]
     Active Substance: WARFARIN
     Dosage: 2 MG, UNK [TWICE A WEEK (2 X WEEKLY)]
  39. COREG [Concomitant]
     Active Substance: CARVEDILOL
     Indication: Cardiac disorder
     Dosage: 6.25 MG, 2X/DAY
     Route: 048
  40. COREG [Concomitant]
     Active Substance: CARVEDILOL
     Dosage: 12.5 MG, 2X/DAY
  41. FLONASE [Concomitant]
     Active Substance: FLUTICASONE PROPIONATE
     Indication: Hypersensitivity
     Dosage: 50 UG, 2X/DAY [2 SPRAYS DAILY]
     Route: 045
  42. GAS-X [Concomitant]
     Active Substance: DIMETHICONE
     Indication: Flatulence
     Dosage: 80 MG, 4X/DAY
  43. GAS-X [Concomitant]
     Active Substance: DIMETHICONE
     Indication: Abdominal discomfort
  44. PROAIR HFA [Concomitant]
     Active Substance: ALBUTEROL SULFATE
     Indication: Dyspnoea
     Dosage: 90 UG, TWO PUFFS AS NEEDED
  45. POTASSIUM CHLORIDE [Concomitant]
     Active Substance: POTASSIUM CHLORIDE
     Indication: Mineral supplementation
     Dosage: 15 MEQ, EVERY 24 HOURS
     Route: 048
  46. POTASSIUM CHLORIDE [Concomitant]
     Active Substance: POTASSIUM CHLORIDE
     Dosage: 10 MG, THREE TIMES A WEEK
  47. POTASSIUM CHLORIDE [Concomitant]
     Active Substance: POTASSIUM CHLORIDE
     Dosage: 10 MEQ, UNK [3 WEEKLY]
  48. EXLAX [Concomitant]
     Indication: Constipation
     Dosage: 25 MG, AS NEEDED (TAKE ONE TABLET T-TH-S AS NEEDED)
     Dates: start: 20150605

REACTIONS (6)
  - Cataract [Not Recovered/Not Resolved]
  - Weight increased [Not Recovered/Not Resolved]
  - Therapeutic product effect incomplete [Not Recovered/Not Resolved]
  - Intentional product use issue [Not Recovered/Not Resolved]
  - Off label use [Unknown]
  - Vision blurred [Unknown]

NARRATIVE: CASE EVENT DATE: 20100101
